FAERS Safety Report 23330252 (Version 1)
Quarter: 2023Q4

REPORT INFORMATION
  Report Type: Spontaneous
  Country: US (occurrence: US)
  Receive Date: 20231222
  Receipt Date: 20231222
  Transmission Date: 20240110
  Serious: No
  Sender: FDA-Public Use
  Company Number: US-009507513-2311USA009655

PATIENT
  Age: 55 Year
  Sex: Male

DRUGS (2)
  1. TEMODAR [Suspect]
     Active Substance: TEMOZOLOMIDE
     Indication: Malignant pituitary tumour
     Dosage: 150 MG/M2 FOR 5 CONSECUTIVE DAYS OUT OF A 28-D CYCLE. / 7 CYCLES WERE ADMINISTERED WITHOUT MAJOR COM
     Route: 048
     Dates: start: 2015
  2. TEMODAR [Suspect]
     Active Substance: TEMOZOLOMIDE
     Dosage: 150 MILLIGRAM/SQ. METER, CYCLICAL / CYCLE 8
     Route: 048
     Dates: start: 201604

REACTIONS (1)
  - Off label use [Unknown]

NARRATIVE: CASE EVENT DATE: 20150101
